FAERS Safety Report 5317259-9 (Version None)
Quarter: 2007Q2

REPORT INFORMATION
  Report Type: 
  Country: None (occurrence: None)
  Receive Date: 20070504
  Receipt Date: 20070423
  Transmission Date: 20071010
  Serious: Yes (Other)
  Sender: FDA-Public Use
  Company Number: FR-PFIZER INC-2007032975

PATIENT
  Age: 50 Year
  Sex: Male

DRUGS (1)
  1. VFEND [Suspect]
     Indication: CANDIDIASIS
     Route: 048

REACTIONS (2)
  - NEOPLASM MALIGNANT [None]
  - PHOTOSENSITIVITY REACTION [None]
